FAERS Safety Report 25481669 (Version 2)
Quarter: 2025Q3

REPORT INFORMATION
  Report Type: Spontaneous
  Country: EU (occurrence: EU)
  Receive Date: 20250626
  Receipt Date: 20250706
  Transmission Date: 20251021
  Serious: Yes (Other)
  Sender: AUROBINDO
  Company Number: EU-MINISAL02-1043845

PATIENT
  Age: 35 Year
  Sex: Female

DRUGS (1)
  1. RISPERIDONE [Suspect]
     Active Substance: RISPERIDONE
     Indication: Product used for unknown indication
     Route: 048
     Dates: start: 202412, end: 20241220

REACTIONS (2)
  - Psychotic disorder [Recovered/Resolved]
  - Product substitution [Recovered/Resolved]

NARRATIVE: CASE EVENT DATE: 20241210
